FAERS Safety Report 12707783 (Version 2)
Quarter: 2016Q3

REPORT INFORMATION
  Report Type: Spontaneous
  Country: JP (occurrence: JP)
  Receive Date: 20160901
  Receipt Date: 20160926
  Transmission Date: 20161109
  Serious: No
  Sender: FDA-Public Use
  Company Number: JP-ELI_LILLY_AND_COMPANY-JP201608013370

PATIENT
  Age: 75 Year
  Sex: Male

DRUGS (2)
  1. HARNAL [Concomitant]
     Active Substance: TAMSULOSIN HYDROCHLORIDE
     Indication: PRODUCT USED FOR UNKNOWN INDICATION
     Dosage: 0.2 MG, QD
     Dates: start: 20140606
  2. ZALUTIA [Suspect]
     Active Substance: TADALAFIL
     Indication: BENIGN PROSTATIC HYPERPLASIA
     Dosage: 2.5 MG, QD
     Route: 048
     Dates: start: 20160822

REACTIONS (1)
  - Visual acuity reduced transiently [Recovered/Resolved]

NARRATIVE: CASE EVENT DATE: 20160823
